FAERS Safety Report 7728819-X (Version None)
Quarter: 2011Q3

REPORT INFORMATION
  Report Type: 
  Country: None (occurrence: None)
  Receive Date: 20110906
  Receipt Date: 20110824
  Transmission Date: 20111222
  Serious: Yes (Hospitalization)
  Sender: FDA-Public Use
  Company Number: JP-BAYER-2011-048051

PATIENT
  Age: 74 Year
  Sex: Male

DRUGS (6)
  1. NEXAVAR [Suspect]
     Indication: HEPATIC NEOPLASM MALIGNANT
     Dosage: 400 MG, BID
     Route: 048
     Dates: start: 20110302, end: 20110413
  2. PYDOXAL [Concomitant]
     Indication: PROPHYLAXIS
     Dosage: DAILY DOSE 60 MG
     Route: 048
     Dates: start: 20110302, end: 20110427
  3. ZOLPIDEM [Concomitant]
     Indication: INSOMNIA
     Dosage: DAILY DOSE 5 MG
     Route: 048
     Dates: start: 20100308
  4. NEXAVAR [Suspect]
     Dosage: 400 MG
     Route: 048
     Dates: start: 20110414, end: 20110427
  5. RIBOFLAVIN TAB [Concomitant]
     Indication: PROPHYLAXIS
     Dosage: DAILY DOSE 60 MG
     Route: 048
     Dates: start: 20110302, end: 20110427
  6. HIRUDOID [Concomitant]
     Indication: ASTEATOSIS
     Dosage: UNK
     Route: 061
     Dates: start: 20110113

REACTIONS (2)
  - FATIGUE [None]
  - HEPATIC FUNCTION ABNORMAL [None]
